FAERS Safety Report 11850225 (Version 3)
Quarter: 2016Q1

REPORT INFORMATION
  Report Type: Spontaneous
  Country: US (occurrence: US)
  Receive Date: 20151218
  Receipt Date: 20160205
  Transmission Date: 20160526
  Serious: Yes (Hospitalization)
  Sender: FDA-Public Use
  Company Number: US-ELI_LILLY_AND_COMPANY-US201512003694

PATIENT
  Sex: Female
  Weight: 48.53 kg

DRUGS (2)
  1. ADCIRCA [Suspect]
     Active Substance: TADALAFIL
     Indication: PRODUCT USED FOR UNKNOWN INDICATION
     Dosage: 40 MG, QD
     Route: 065
  2. TYVASO [Suspect]
     Active Substance: TREPROSTINIL
     Indication: PULMONARY HYPERTENSION
     Dosage: 10-14 BREATHS
     Route: 055
     Dates: start: 20121227, end: 20151223

REACTIONS (4)
  - Pneumonia [Unknown]
  - Hip fracture [Unknown]
  - Unresponsive to stimuli [Unknown]
  - Fall [Unknown]
